FAERS Safety Report 5939854-6 (Version None)
Quarter: 2008Q4

REPORT INFORMATION
  Report Type: 
  Country: None (occurrence: None)
  Receive Date: 20081104
  Receipt Date: 20081023
  Transmission Date: 20090506
  Serious: Yes (Other)
  Sender: FDA-Public Use
  Company Number: US-WYE-H06565108

PATIENT
  Age: 33 Year
  Sex: Female
  Weight: 45.4 kg

DRUGS (2)
  1. ADVIL [Suspect]
     Indication: HEADACHE
     Dosage: TWO CAPLETS AS NEEDED
     Route: 048
     Dates: start: 20080401, end: 20081001
  2. ADVIL [Suspect]
     Dosage: UNKNOWN
     Route: 048
     Dates: start: 20081016, end: 20081016

REACTIONS (6)
  - DRUG EXPOSURE VIA BREAST MILK [None]
  - EYE SWELLING [None]
  - HYPERSENSITIVITY [None]
  - LIP SWELLING [None]
  - SENSATION OF FOREIGN BODY [None]
  - SWELLING FACE [None]
